FAERS Safety Report 14631854 (Version 3)
Quarter: 2018Q1

REPORT INFORMATION
  Report Type: Spontaneous
  Country: US (occurrence: US)
  Receive Date: 20180313
  Receipt Date: 20180326
  Transmission Date: 20180509
  Serious: Yes (Other)
  Sender: FDA-Public Use
  Company Number: US-JNJFOC-20180313688

PATIENT
  Age: 46 Year
  Sex: Male

DRUGS (1)
  1. RIVAROXABAN [Suspect]
     Active Substance: RIVAROXABAN
     Indication: DEEP VEIN THROMBOSIS
     Route: 048
     Dates: start: 20150415, end: 201504

REACTIONS (4)
  - Peripheral ischaemia [Recovering/Resolving]
  - Drug ineffective [Unknown]
  - Embolism [Unknown]
  - Portal vein thrombosis [Unknown]

NARRATIVE: CASE EVENT DATE: 20150422
